FAERS Safety Report 4761094-7 (Version None)
Quarter: 2005Q3

REPORT INFORMATION
  Report Type: 
  Country: None (occurrence: None)
  Receive Date: 20050905
  Receipt Date: 20050831
  Transmission Date: 20060218
  Serious: Yes (Hospitalization)
  Sender: FDA-Public Use
  Company Number: US-RB-2015-2005

PATIENT
  Sex: Female

DRUGS (6)
  1. BUPRENORPHINE HCL [Suspect]
     Indication: PAIN
     Route: 060
     Dates: start: 20050615, end: 20050828
  2. BUPRENORPHINE HCL [Suspect]
     Route: 060
     Dates: start: 20050829
  3. CARISOPRODOL [Concomitant]
     Indication: MUSCLE RELAXANT THERAPY
     Route: 048
     Dates: start: 20050301
  4. VENLAFAXINE HCL [Concomitant]
     Indication: ANTIDEPRESSANT DRUG LEVEL THERAPEUTIC
     Route: 048
     Dates: start: 20050301
  5. TOPIRAMATE [Concomitant]
     Indication: EPILEPSY
     Route: 048
     Dates: start: 20050301
  6. SUMATRIPTAN SUCCINATE [Concomitant]
     Indication: MIGRAINE
     Dates: start: 20050828, end: 20050829

REACTIONS (2)
  - BRADYCARDIA [None]
  - MIGRAINE [None]
